FAERS Safety Report 14934451 (Version 2)
Quarter: 2018Q2

REPORT INFORMATION
  Report Type: Spontaneous
  Country: CA (occurrence: CA)
  Receive Date: 20180524
  Receipt Date: 20180529
  Transmission Date: 20180711
  Serious: Yes (Other)
  Sender: FDA-Public Use
  Company Number: CA-PFIZER INC-2018212860

PATIENT
  Age: 55 Year
  Sex: Female

DRUGS (5)
  1. LEFLUNOMIDE. [Concomitant]
     Active Substance: LEFLUNOMIDE
     Dosage: UNK
  2. CARBAMAZEPINE. [Concomitant]
     Active Substance: CARBAMAZEPINE
     Dosage: UNK
  3. CELEBREX [Suspect]
     Active Substance: CELECOXIB
     Dosage: UNK
  4. GABAPENTIN. [Suspect]
     Active Substance: GABAPENTIN
     Dosage: UNK
  5. ENBREL [Suspect]
     Active Substance: ETANERCEPT
     Dosage: UNK
     Dates: end: 20180426

REACTIONS (2)
  - Scab [Not Recovered/Not Resolved]
  - Neoplasm malignant [Not Recovered/Not Resolved]
